FAERS Safety Report 13121937 (Version 2)
Quarter: 2017Q1

REPORT INFORMATION
  Report Type: Spontaneous
  Country: JP (occurrence: JP)
  Receive Date: 20170117
  Receipt Date: 20170203
  Transmission Date: 20170428
  Serious: Yes (Hospitalization, Other)
  Sender: FDA-Public Use
  Company Number: JP-PFIZER INC-2017016199

PATIENT
  Age: 84 Year
  Sex: Male

DRUGS (11)
  1. LUPRAC [Concomitant]
     Active Substance: TORSEMIDE
     Dosage: UNK
  2. MEXITIL [Concomitant]
     Active Substance: MEXILETINE HYDROCHLORIDE
     Dosage: UNK
  3. CALBLOCK [Concomitant]
     Active Substance: AZELNIDIPINE
     Dosage: UNK
  4. BEZATOL [Concomitant]
     Active Substance: BEZAFIBRATE
     Dosage: UNK
  5. SUINY [Suspect]
     Active Substance: ANAGLIPTIN
     Indication: TYPE 2 DIABETES MELLITUS
     Dosage: 100 MG, 2X/DAY
     Route: 048
     Dates: start: 20140404, end: 20151105
  6. WARFARIN POTASSIUM [Concomitant]
     Active Substance: WARFARIN POTASSIUM
     Dosage: UNK
  7. SEIBULE [Suspect]
     Active Substance: MIGLITOL
     Indication: TYPE 2 DIABETES MELLITUS
     Dosage: 150 MG, UNK
     Route: 048
     Dates: end: 20160328
  8. SUINY [Suspect]
     Active Substance: ANAGLIPTIN
     Dosage: 200 MG TWICE DAILY
     Route: 048
     Dates: start: 20151106, end: 20160328
  9. METFORMIN HYDROCHLORIDE. [Concomitant]
     Active Substance: METFORMIN HYDROCHLORIDE
     Dosage: UNK
     Dates: end: 20160328
  10. PREMINENT [Concomitant]
     Active Substance: HYDROCHLOROTHIAZIDE\LOSARTAN POTASSIUM
     Dosage: UNK
  11. HARNAL [Concomitant]
     Active Substance: TAMSULOSIN HYDROCHLORIDE
     Dosage: UNK

REACTIONS (4)
  - Diabetic gangrene [Recovered/Resolved with Sequelae]
  - Blood creatinine increased [Recovered/Resolved]
  - Benign prostatic hyperplasia [Unknown]
  - Diabetes mellitus inadequate control [Not Recovered/Not Resolved]

NARRATIVE: CASE EVENT DATE: 20140610
